FAERS Safety Report 5424512-7 (Version None)
Quarter: 2007Q3

REPORT INFORMATION
  Report Type: 
  Country: None (occurrence: None)
  Receive Date: 20070822
  Receipt Date: 20070809
  Transmission Date: 20080115
  Serious: Yes (Other)
  Sender: FDA-Public Use
  Company Number: 100#03#2007-02976

PATIENT
  Age: 70 Year
  Sex: Female

DRUGS (8)
  1. CISPLATIN [Suspect]
     Indication: PERIPHERAL T-CELL LYMPHOMA UNSPECIFIED STAGE IV
     Dosage: 100 MG/M2
  2. GEMCITABINE [Suspect]
     Indication: PERIPHERAL T-CELL LYMPHOMA UNSPECIFIED STAGE IV
     Dosage: 1 G/M2
  3. METHYLPREDNISOLONE [Suspect]
     Indication: PERIPHERAL T-CELL LYMPHOMA UNSPECIFIED STAGE IV
     Dosage: 1 G
  4. BLEOMYCIN (BLEOMYCIN) (BLEOMYCIN) [Concomitant]
  5. CYCLOPHOSPHAMIDE [Concomitant]
  6. ETOPOSIDE [Concomitant]
  7. METHOTREXATE [Concomitant]
  8. VINCRISTINE [Concomitant]

REACTIONS (1)
  - NEUTROPENIA [None]
